FAERS Safety Report 21246012 (Version 3)
Quarter: 2022Q3

REPORT INFORMATION
  Report Type: Report from Study
  Country: IN (occurrence: IN)
  Receive Date: 20220824
  Receipt Date: 20220927
  Transmission Date: 20221027
  Serious: Yes (Other)
  Sender: FDA-Public Use
  Company Number: IN-NOVARTISPH-NVSC2022IN186478

PATIENT
  Sex: Female
  Weight: 85 kg

DRUGS (4)
  1. SECUKINUMAB [Suspect]
     Active Substance: SECUKINUMAB
     Indication: Psoriasis
     Dosage: 300 MG, QMO
     Route: 058
     Dates: start: 20220716
  2. SECUKINUMAB [Suspect]
     Active Substance: SECUKINUMAB
     Indication: Psoriatic arthropathy
     Dosage: UNK (LAST INJECTION)
     Route: 065
     Dates: start: 20220818
  3. SECUKINUMAB [Suspect]
     Active Substance: SECUKINUMAB
     Dosage: 150 MG, QMO
     Route: 058
  4. SECUKINUMAB [Suspect]
     Active Substance: SECUKINUMAB
     Dosage: 150 MILLIGRAM PER MILLILITRE
     Route: 065

REACTIONS (12)
  - Blood pressure increased [Unknown]
  - Blood glucose abnormal [Unknown]
  - Aspartate aminotransferase increased [Unknown]
  - Pain in extremity [Unknown]
  - Osteopenia [Unknown]
  - Haemoglobin decreased [Unknown]
  - Arthralgia [Unknown]
  - Sleep deficit [Unknown]
  - Iron deficiency [Recovered/Resolved]
  - Liver disorder [Recovered/Resolved]
  - Illness [Recovered/Resolved]
  - Urinary tract infection [Unknown]
